FAERS Safety Report 7433993-9 (Version None)
Quarter: 2011Q2

REPORT INFORMATION
  Report Type: 
  Country: None (occurrence: None)
  Receive Date: 20110421
  Receipt Date: 20110421
  Transmission Date: 20111010
  Serious: No
  Sender: FDA-Public Use
  Company Number: None

PATIENT
  Age: 64 Year
  Sex: Female
  Weight: 90.7194 kg

DRUGS (1)
  1. ZETIA [Suspect]
     Indication: BLOOD CHOLESTEROL
     Dosage: 5 MGS DAILY ORAL
     Route: 048
     Dates: start: 20110211

REACTIONS (4)
  - HYPOAESTHESIA ORAL [None]
  - RASH [None]
  - SKIN ULCER [None]
  - LIP DRY [None]
